FAERS Safety Report 4739706-3 (Version None)
Quarter: 2005Q3

REPORT INFORMATION
  Report Type: 
  Country: None (occurrence: None)
  Receive Date: 20050810
  Receipt Date: 20050429
  Transmission Date: 20060218
  Serious: No
  Sender: FDA-Public Use
  Company Number: US-GLAXOSMITHKLINE-A0556312A

PATIENT
  Sex: Male

DRUGS (11)
  1. PAXIL [Suspect]
     Dosage: 30MG PER DAY
     Route: 048
  2. VASOTEC RPD [Concomitant]
  3. METOPROLOL [Concomitant]
  4. ASPIRIN [Concomitant]
  5. CLORAZEPATE DIPOT [Concomitant]
  6. LOVASTATIN [Concomitant]
  7. INSULIN [Concomitant]
  8. DICLOFENAC [Concomitant]
  9. CALCIUM CHANNEL BLOCKER [Concomitant]
  10. ASCORBIC ACID [Concomitant]
  11. VITAMIN CAP [Concomitant]

REACTIONS (1)
  - MUSCLE SPASMS [None]
